FAERS Safety Report 14073793 (Version 1)
Quarter: 2017Q4

REPORT INFORMATION
  Report Type: Spontaneous
  Country: FR (occurrence: FR)
  Receive Date: 20171011
  Receipt Date: 20171011
  Transmission Date: 20180321
  Serious: Yes (Hospitalization)
  Sender: FDA-Public Use
  Company Number: FR-PFIZER INC-2017433315

PATIENT
  Age: 77 Year
  Sex: Female

DRUGS (5)
  1. ENDOXAN /00021101/ [Suspect]
     Active Substance: CYCLOPHOSPHAMIDE
     Indication: B-CELL LYMPHOMA
     Dosage: 750 MG/M2, CYCLIC
     Route: 042
     Dates: start: 20170815, end: 20170815
  2. CORTANCYL [Suspect]
     Active Substance: PREDNISONE
     Indication: B-CELL LYMPHOMA
     Dosage: 73 MG, CYCLIC
     Route: 048
     Dates: start: 20170815, end: 20170815
  3. DOXORUBICINE TEVA [Suspect]
     Active Substance: DOXORUBICIN
     Indication: B-CELL LYMPHOMA
     Dosage: 50 MG/M2, CYCLIC
     Route: 042
     Dates: start: 20170815, end: 20170815
  4. VINCRISTINE SULFATE. [Suspect]
     Active Substance: VINCRISTINE SULFATE
     Indication: B-CELL LYMPHOMA
     Dosage: 2 MG, CYCLIC
     Route: 042
     Dates: start: 20170815, end: 20170815
  5. MABTHERA [Suspect]
     Active Substance: RITUXIMAB
     Indication: B-CELL LYMPHOMA
     Dosage: 750 MG/M2, CYCLIC
     Route: 042
     Dates: start: 20170815, end: 20170815

REACTIONS (1)
  - Pneumocystis jirovecii pneumonia [Recovering/Resolving]

NARRATIVE: CASE EVENT DATE: 20170903
